FAERS Safety Report 5309641-0 (Version None)
Quarter: 2007Q2

REPORT INFORMATION
  Report Type: 
  Country: None (occurrence: None)
  Receive Date: 20070427
  Receipt Date: 20060627
  Transmission Date: 20071010
  Serious: No
  Sender: FDA-Public Use
  Company Number: US-GLAXOSMITHKLINE-A0610522A

PATIENT
  Age: 50 Year
  Sex: Female

DRUGS (4)
  1. DEXEDRINE [Suspect]
     Indication: NARCOLEPSY
     Dosage: 45MG AS REQUIRED
     Route: 048
     Dates: start: 20050101, end: 20050101
  2. DIOVAN HCT [Concomitant]
  3. ZYRTEC [Concomitant]
  4. THYROID TAB [Concomitant]

REACTIONS (3)
  - DRUG INEFFECTIVE [None]
  - INITIAL INSOMNIA [None]
  - MEDICATION ERROR [None]
